FAERS Safety Report 8298368-1 (Version None)
Quarter: 2012Q2

REPORT INFORMATION
  Report Type: 
  Country: None (occurrence: None)
  Receive Date: 20120419
  Receipt Date: 20120409
  Transmission Date: 20120825
  Serious: Yes (Disabling)
  Sender: FDA-Public Use
  Company Number: US-NOVOPROD-344995

PATIENT
  Age: 46 Year
  Sex: Male
  Weight: 113 kg

DRUGS (1)
  1. LIRAGLUTIDE FLEXPEN [Suspect]
     Indication: TYPE 2 DIABETES MELLITUS
     Dosage: 1.8 U, QD/DOSE STEP
     Route: 058
     Dates: start: 20110915, end: 20111112

REACTIONS (1)
  - GASTROOESOPHAGEAL REFLUX DISEASE [None]
